FAERS Safety Report 4600019-1 (Version None)
Quarter: 2005Q1

REPORT INFORMATION
  Report Type: 
  Country: None (occurrence: None)
  Receive Date: 20050307
  Receipt Date: 20040803
  Transmission Date: 20050727
  Serious: Yes (Life-Threatening, Hospitalization)
  Sender: FDA-Public Use
  Company Number: PHBS2004GR10164

PATIENT
  Age: 27 Year
  Sex: Female

DRUGS (2)
  1. HYDERGINE [Suspect]
     Indication: CERVICOBRACHIAL SYNDROME
  2. QUIET LIFE [Concomitant]

REACTIONS (5)
  - ACCIDENT AT HOME [None]
  - FRACTURE [None]
  - HALLUCINATION, VISUAL [None]
  - INJURY [None]
  - OVERDOSE [None]
